FAERS Safety Report 14633056 (Version 1)
Quarter: 2018Q1

REPORT INFORMATION
  Report Type: Spontaneous
  Country: US (occurrence: US)
  Receive Date: 20180313
  Receipt Date: 20180313
  Transmission Date: 20180509
  Serious: Yes (Death)
  Sender: FDA-Public Use
  Company Number: US-BEH-2018088560

PATIENT
  Age: 75 Year
  Sex: Female
  Weight: 47.62 kg

DRUGS (27)
  1. METOPROLOL. [Concomitant]
     Active Substance: METOPROLOL
  2. LANTUS [Concomitant]
     Active Substance: INSULIN GLARGINE
  3. IPRATROPIUM [Concomitant]
     Active Substance: IPRATROPIUM
  4. MACROBID [Concomitant]
     Active Substance: NITROFURANTOIN\NITROFURANTOIN MONOHYDRATE
  5. ZANTAC [Concomitant]
     Active Substance: RANITIDINE HYDROCHLORIDE
  6. ZALEPLON. [Concomitant]
     Active Substance: ZALEPLON
  7. LASIX [Concomitant]
     Active Substance: FUROSEMIDE
  8. ALBUTEROL                          /00139501/ [Concomitant]
     Active Substance: ALBUTEROL
  9. PRESERVISION [Concomitant]
     Active Substance: MINERALS\VITAMINS
  10. CEFTRIAXONE. [Concomitant]
     Active Substance: CEFTRIAXONE
  11. LISINOPRIL. [Concomitant]
     Active Substance: LISINOPRIL
  12. ONDANSETRON [Concomitant]
     Active Substance: ONDANSETRON
  13. HIZENTRA [Suspect]
     Active Substance: HUMAN IMMUNOGLOBULIN G
     Indication: PRODUCT USED FOR UNKNOWN INDICATION
     Dosage: 8 G, QW
     Route: 058
     Dates: start: 20130701
  14. MYCAMINE [Concomitant]
     Active Substance: MICAFUNGIN SODIUM
  15. PREDNISONE. [Concomitant]
     Active Substance: PREDNISONE
  16. ACETAMINOPHEN W/HYDROCODONE [Concomitant]
     Active Substance: ACETAMINOPHEN\HYDROCODONE
  17. OMEPRAZOLE. [Concomitant]
     Active Substance: OMEPRAZOLE
  18. OXYGEN. [Concomitant]
     Active Substance: OXYGEN
  19. CALCIUM 600+D                      /00944201/ [Concomitant]
  20. HIZENTRA [Suspect]
     Active Substance: HUMAN IMMUNOGLOBULIN G
     Dosage: UNK
     Route: 058
  21. AMPICILLIN AND SULBACTAM [Concomitant]
     Active Substance: AMPICILLIN SODIUM\SULBACTAM SODIUM
  22. NIFEDIPINE. [Concomitant]
     Active Substance: NIFEDIPINE
  23. NEURONTIN [Concomitant]
     Active Substance: GABAPENTIN
  24. VITAMIN D                          /00107901/ [Concomitant]
     Active Substance: ERGOCALCIFEROL
  25. SYNTHROID [Concomitant]
     Active Substance: LEVOTHYROXINE SODIUM
  26. ASPIRIN. [Concomitant]
     Active Substance: ASPIRIN
  27. PULMICORT TURBUHALER [Concomitant]
     Active Substance: BUDESONIDE

REACTIONS (1)
  - Death [Fatal]

NARRATIVE: CASE EVENT DATE: 20180305
